FAERS Safety Report 6136657-7 (Version None)
Quarter: 2009Q1

REPORT INFORMATION
  Report Type: 
  Country: None (occurrence: None)
  Receive Date: 20090330
  Receipt Date: 20090320
  Transmission Date: 20090719
  Serious: Yes (Other)
  Sender: FDA-Public Use
  Company Number: B0566540A

PATIENT
  Sex: Male

DRUGS (3)
  1. TELZIR [Suspect]
     Indication: HIV INFECTION
     Dates: start: 20060726, end: 20060807
  2. NORVIR [Suspect]
     Indication: HIV INFECTION
     Route: 048
     Dates: end: 20080807
  3. TRUVADA [Suspect]
     Indication: HIV INFECTION
     Route: 048
     Dates: end: 20080807

REACTIONS (1)
  - HEPATOTOXICITY [None]
